FAERS Safety Report 9944971 (Version 1)
Quarter: 2014Q1

REPORT INFORMATION
  Report Type: Report from Study
  Country: US (occurrence: US)
  Receive Date: 20140303
  Receipt Date: 20140303
  Transmission Date: 20141002
  Serious: No
  Sender: FDA-Public Use
  Company Number: US-ABBVIE-13P-163-1052369-00

PATIENT
  Age: 42 Year
  Sex: Male

DRUGS (13)
  1. HUMIRA [Suspect]
     Indication: CROHN^S DISEASE
     Dates: start: 20130123
  2. PENTASA [Concomitant]
     Indication: CROHN^S DISEASE
     Dosage: 2 TABLETS THREE TIMES A DAY
  3. DIPHEN-ATROP [Concomitant]
     Indication: DIARRHOEA
     Dosage: 1-3 AS NEEDED
  4. OTC LOMOTIL [Concomitant]
     Indication: DIARRHOEA
  5. LORAZEPAM [Concomitant]
     Indication: ANXIETY
     Dosage: EVERY 6 HOURS AS NEEDED
  6. CITALOPRAM [Concomitant]
     Indication: DEPRESSION
  7. STRATTERA [Concomitant]
     Indication: ANXIETY
     Dosage: 80 MG DAILY
  8. TYLENOL PM [Concomitant]
     Indication: PRODUCT USED FOR UNKNOWN INDICATION
  9. VITAMIN C [Concomitant]
     Indication: VITAMIN SUPPLEMENTATION
  10. FERROUS SULFATE [Concomitant]
     Indication: PRODUCT USED FOR UNKNOWN INDICATION
     Dosage: 3-4 TIMES DAILY
  11. ECHINACEA [Concomitant]
     Indication: PRODUCT USED FOR UNKNOWN INDICATION
  12. PREDNISONE [Concomitant]
     Indication: PRODUCT USED FOR UNKNOWN INDICATION
     Dosage: 20 MG DAILY
     Dates: end: 20130213
  13. PREDNISONE [Concomitant]
     Dosage: 10 MG DAILY TAPER DOWN TO 5 MG AS TOLERATED
     Dates: start: 20130214

REACTIONS (2)
  - Abdominal pain [Not Recovered/Not Resolved]
  - Diarrhoea [Not Recovered/Not Resolved]
